FAERS Safety Report 24072337 (Version 3)
Quarter: 2024Q3

REPORT INFORMATION
  Report Type: Spontaneous
  Country: IL (occurrence: IL)
  Receive Date: 20240710
  Receipt Date: 20240820
  Transmission Date: 20241017
  Serious: Yes (Death, Other)
  Sender: TAKEDA
  Company Number: IL-TAKEDA-2024TUS065987

PATIENT
  Age: 7 Year
  Sex: Male

DRUGS (2)
  1. MARIBAVIR [Suspect]
     Active Substance: MARIBAVIR
     Indication: Pneumonia cytomegaloviral
     Dosage: 200 MILLIGRAM, BID
     Route: 065
     Dates: start: 20240627
  2. MARIBAVIR [Suspect]
     Active Substance: MARIBAVIR
     Indication: Cytomegalovirus infection

REACTIONS (7)
  - Pneumonia cytomegaloviral [Fatal]
  - Diarrhoea [Fatal]
  - Cytomegalovirus colitis [Unknown]
  - Inability to afford medication [Unknown]
  - Off label use [Unknown]
  - Viral load increased [Unknown]
  - Malabsorption [Unknown]

NARRATIVE: CASE EVENT DATE: 20240627
